FAERS Safety Report 15454463 (Version 3)
Quarter: 2018Q4

REPORT INFORMATION
  Report Type: Spontaneous
  Country: US (occurrence: US)
  Receive Date: 20181002
  Receipt Date: 20181201
  Transmission Date: 20190204
  Serious: No
  Sender: FDA-Public Use
  Company Number: US-PFIZER INC-2018395397

PATIENT
  Age: 32 Year
  Sex: Female

DRUGS (11)
  1. LORAZEPAM. [Suspect]
     Active Substance: LORAZEPAM
     Indication: MIGRAINE
     Dosage: 1 MG, UNK
     Route: 048
  2. XANAX [Suspect]
     Active Substance: ALPRAZOLAM
     Indication: ANXIETY DISORDER
  3. MARINOL [ALLOPURINOL] [Concomitant]
     Indication: MIGRAINE
     Dosage: 1 DF, 3X/DAY
     Route: 048
  4. LYRICA [Suspect]
     Active Substance: PREGABALIN
     Indication: MIGRAINE
     Dosage: 150 MG, TWICE A DAY
     Route: 048
     Dates: start: 20160907
  5. LORAZEPAM. [Suspect]
     Active Substance: LORAZEPAM
     Indication: ANXIETY DISORDER
  6. METOCLOPRAMIDE HCL [Suspect]
     Active Substance: METOCLOPRAMIDE HYDROCHLORIDE
     Indication: MIGRAINE
     Dosage: 10 MG, UNK
     Route: 048
  7. LYRICA [Suspect]
     Active Substance: PREGABALIN
     Indication: NEURALGIA
  8. XANAX [Suspect]
     Active Substance: ALPRAZOLAM
     Indication: MIGRAINE
     Dosage: 0.5 MG, AS NEEDED
     Route: 048
  9. METOCLOPRAMIDE HCL [Suspect]
     Active Substance: METOCLOPRAMIDE HYDROCHLORIDE
     Indication: ANXIETY DISORDER
  10. MARINOL [ALLOPURINOL] [Concomitant]
     Indication: ANXIETY DISORDER
  11. LYRICA [Suspect]
     Active Substance: PREGABALIN
     Indication: ANXIETY DISORDER
     Dosage: 50 MG, TWICE A DAY
     Route: 048

REACTIONS (5)
  - Drug ineffective [Unknown]
  - Hypoaesthesia [Unknown]
  - Insomnia [Unknown]
  - Neck pain [Unknown]
  - Paraesthesia [Unknown]
